FAERS Safety Report 25110282 (Version 2)
Quarter: 2025Q2

REPORT INFORMATION
  Report Type: Spontaneous
  Country: US (occurrence: US)
  Receive Date: 20250324
  Receipt Date: 20250418
  Transmission Date: 20250716
  Serious: No
  Sender: ROCHE
  Company Number: US-ROCHE-10000233743

PATIENT
  Age: 76 Year
  Sex: Female

DRUGS (4)
  1. VABYSMO [Suspect]
     Active Substance: FARICIMAB-SVOA
     Indication: Neovascular age-related macular degeneration
     Dosage: ONE INJECTION IN LEFT EYE EVERY 6 TO 7 WEEKS
     Route: 050
     Dates: start: 2024, end: 20250117
  2. VABYSMO [Suspect]
     Active Substance: FARICIMAB-SVOA
     Indication: Dry age-related macular degeneration
     Dosage: ONE INJECTION IN LEFT EYE EVERY 6 TO 7 WEEKS
     Route: 050
     Dates: start: 2024, end: 20250117
  3. RESTASIS [Concomitant]
     Active Substance: CYCLOSPORINE
     Indication: Dry eye
     Route: 047
  4. EYLEA [Concomitant]
     Active Substance: AFLIBERCEPT
     Dates: start: 20250226

REACTIONS (2)
  - Uveitis [Recovered/Resolved]
  - Off label use [Unknown]

NARRATIVE: CASE EVENT DATE: 20250217
